FAERS Safety Report 4373229-9 (Version None)
Quarter: 2004Q2

REPORT INFORMATION
  Report Type: 
  Country: None (occurrence: None)
  Receive Date: 20040608
  Receipt Date: 20040528
  Transmission Date: 20050107
  Serious: Yes (Other)
  Sender: FDA-Public Use
  Company Number: 8006317

PATIENT
  Age: 30 Year
  Sex: Male

DRUGS (3)
  1. PAROXETINE HCL [Suspect]
     Indication: DEPRESSION
     Dosage: 40MG UNKNOWN
     Route: 048
  2. LEVETIRACETAM [Suspect]
  3. OLANZAPINE [Concomitant]

REACTIONS (9)
  - BIPOLAR II DISORDER [None]
  - DEPRESSION [None]
  - DISINHIBITION [None]
  - ENERGY INCREASED [None]
  - FLIGHT OF IDEAS [None]
  - HYPOMANIA [None]
  - INSOMNIA [None]
  - LIBIDO INCREASED [None]
  - PERSONALITY CHANGE [None]
